FAERS Safety Report 9440191 (Version 1)
Quarter: 2013Q3

REPORT INFORMATION
  Report Type: Spontaneous
  Country: JP (occurrence: JP)
  Receive Date: 20130805
  Receipt Date: 20130805
  Transmission Date: 20140515
  Serious: Yes (Other)
  Sender: FDA-Public Use
  Company Number: PHHY2013JP083036

PATIENT
  Sex: Male

DRUGS (2)
  1. DIOVAN [Suspect]
     Indication: IGA NEPHROPATHY
     Dosage: 20 MG, DAILY
     Route: 048
  2. DIOVAN [Suspect]
     Indication: OFF LABEL USE

REACTIONS (3)
  - Fall [Unknown]
  - Dizziness [Unknown]
  - Orthostatic hypotension [Unknown]
